FAERS Safety Report 7669324-9 (Version None)
Quarter: 2011Q3

REPORT INFORMATION
  Report Type: 
  Country: None (occurrence: None)
  Receive Date: 20110808
  Receipt Date: 20110803
  Transmission Date: 20111222
  Serious: Yes (Hospitalization)
  Sender: FDA-Public Use
  Company Number: PHHY2011KR70285

PATIENT
  Sex: Female

DRUGS (2)
  1. ZOLEDRONOC ACID [Suspect]
     Indication: OSTEOPOROSIS
     Dosage: 5 MG, PER DAY
     Route: 042
     Dates: start: 20090808
  2. ZOLEDRONOC ACID [Suspect]
     Dosage: 5 MG, PER DAY
     Route: 042
     Dates: start: 20100805

REACTIONS (2)
  - FALL [None]
  - WRIST FRACTURE [None]
